FAERS Safety Report 8606836-5 (Version None)
Quarter: 2012Q3

REPORT INFORMATION
  Report Type: 
  Country: None (occurrence: None)
  Receive Date: 20120820
  Receipt Date: 20120810
  Transmission Date: 20120928
  Serious: Yes (Other)
  Sender: FDA-Public Use
  Company Number: CHPA2012US017950

PATIENT
  Sex: Female

DRUGS (4)
  1. EXCEDRIN (MIGRAINE) [Suspect]
     Dosage: 2 DF, QD
     Route: 048
     Dates: start: 20060101
  2. ANTIBIOTICS [Suspect]
     Dosage: UNK (ONLY TOOK ONE DOSE)
     Dates: start: 20080101, end: 20080101
  3. EXCEDRIN (MIGRAINE) [Suspect]
     Indication: MIGRAINE
     Dosage: UNK, UNK
     Route: 048
     Dates: start: 20060101, end: 20060101
  4. ANTIBIOTICS [Suspect]
     Dosage: UNK, UNK
     Dates: start: 20060101, end: 20060101

REACTIONS (6)
  - DYSPNOEA [None]
  - URTICARIA [None]
  - OBSTRUCTIVE AIRWAYS DISORDER [None]
  - RASH [None]
  - HYPERSENSITIVITY [None]
  - PRURITUS [None]
